FAERS Safety Report 23832026 (Version 1)
Quarter: 2024Q2

REPORT INFORMATION
  Report Type: Spontaneous
  Country: US (occurrence: US)
  Receive Date: 20240508
  Receipt Date: 20240508
  Transmission Date: 20240716
  Serious: No
  Sender: FDA-Public Use
  Company Number: US-ABBVIE-5744793

PATIENT
  Sex: Female

DRUGS (1)
  1. RINVOQ [Suspect]
     Active Substance: UPADACITINIB
     Indication: Inflammatory bowel disease
     Dosage: FORM STRENGTH: 45 MILLIGRAM
     Route: 048

REACTIONS (3)
  - Urticaria [Unknown]
  - Pruritus [Unknown]
  - Throat tightness [Unknown]
